FAERS Safety Report 4935068-7 (Version None)
Quarter: 2006Q1

REPORT INFORMATION
  Report Type: 
  Country: None (occurrence: None)
  Receive Date: 20060303
  Receipt Date: 20060303
  Transmission Date: 20060701
  Serious: No
  Sender: FDA-Public Use
  Company Number: None

PATIENT
  Age: 46 Year
  Sex: Female
  Weight: 50.3493 kg

DRUGS (2)
  1. OXYCODONE ER 80 MG [Suspect]
     Indication: BACK PAIN
     Dosage: 1 PO Q 12 HRS
     Route: 048
     Dates: start: 20060226
  2. OXYCODONE ER 80 MG [Suspect]
     Indication: BACK PAIN
     Dosage: 1 PO Q 12 HRS
     Route: 048
     Dates: start: 20060301

REACTIONS (3)
  - NAUSEA [None]
  - RASH [None]
  - VOMITING [None]
